FAERS Safety Report 11540141 (Version 12)
Quarter: 2016Q4

REPORT INFORMATION
  Report Type: Report from Study
  Country: IN (occurrence: IN)
  Receive Date: 20150923
  Receipt Date: 20161014
  Transmission Date: 20170206
  Serious: Yes (Death, Hospitalization, Other)
  Sender: FDA-Public Use
  Company Number: IN-B.I. PHARMACEUTICALS,INC./RIDGEFIELD-2015-BI-52058BI

PATIENT
  Age: 73 Year
  Sex: Male
  Weight: 49.5 kg

DRUGS (8)
  1. FORACORT [Concomitant]
     Active Substance: BUDESONIDE\FORMOTEROL FUMARATE
     Indication: IDIOPATHIC PULMONARY FIBROSIS
     Dosage: FORMULATION: ROTACAPS; DOSE PER APPLICATION AND DAILY DOSE: 800 MCG + 12 MCG
     Route: 048
     Dates: start: 20150911
  2. DERIPHYLLINE [Concomitant]
     Indication: IDIOPATHIC PULMONARY FIBROSIS
     Route: 048
     Dates: start: 20150911, end: 20150920
  3. BETADINE [Concomitant]
     Active Substance: POVIDONE-IODINE
     Indication: PROPHYLAXIS
     Dosage: FORMULATION: GARGLE
     Route: 048
     Dates: start: 20150911
  4. BIBF 1120 [Suspect]
     Active Substance: NINTEDANIB
     Route: 048
     Dates: start: 20150515, end: 20150918
  5. ASPIRIN. [Concomitant]
     Active Substance: ASPIRIN
     Indication: CONGESTIVE CARDIOMYOPATHY
     Route: 048
     Dates: start: 20150911
  6. LANOXIN [Concomitant]
     Active Substance: DIGOXIN
     Indication: CONGESTIVE CARDIOMYOPATHY
     Route: 048
     Dates: start: 20150911, end: 20151030
  7. BIBF 1120 [Suspect]
     Active Substance: NINTEDANIB
     Indication: IDIOPATHIC PULMONARY FIBROSIS
     Route: 048
     Dates: start: 20130717, end: 20140427
  8. BIBF 1120 [Suspect]
     Active Substance: NINTEDANIB
     Route: 048
     Dates: start: 20140428, end: 20150514

REACTIONS (9)
  - Cardiac failure congestive [Recovered/Resolved]
  - Blood urea increased [Not Recovered/Not Resolved]
  - Troponin T increased [Unknown]
  - Oral candidiasis [Recovered/Resolved]
  - Cardiac failure congestive [Fatal]
  - Cardiac failure congestive [Recovered/Resolved]
  - Blood creatine phosphokinase MB increased [Unknown]
  - Pancreatitis [Recovered/Resolved]
  - Cardiac arrest [Fatal]

NARRATIVE: CASE EVENT DATE: 20150711
